FAERS Safety Report 14661100 (Version 2)
Quarter: 2018Q2

REPORT INFORMATION
  Report Type: Spontaneous
  Country: US (occurrence: US)
  Receive Date: 20180320
  Receipt Date: 20180409
  Transmission Date: 20180711
  Serious: No
  Sender: FDA-Public Use
  Company Number: US-GLAXOSMITHKLINE-US2018046718

PATIENT
  Age: 72 Year
  Sex: Female
  Weight: 56.24 kg

DRUGS (5)
  1. LEUCOVORIN. [Concomitant]
     Active Substance: LEUCOVORIN
  2. BENLYSTA [Suspect]
     Active Substance: BELIMUMAB
     Indication: SYSTEMIC LUPUS ERYTHEMATOSUS
     Dosage: 200 MG, WE
     Route: 042
     Dates: start: 201712
  3. LOSARTAN. [Concomitant]
     Active Substance: LOSARTAN
  4. PLAQUENIL [Concomitant]
     Active Substance: HYDROXYCHLOROQUINE SULFATE
  5. METHOTREXATE. [Concomitant]
     Active Substance: METHOTREXATE

REACTIONS (3)
  - Skin exfoliation [Recovering/Resolving]
  - Wrong technique in device usage process [Unknown]
  - Injection site bruising [Not Recovered/Not Resolved]

NARRATIVE: CASE EVENT DATE: 201712
